FAERS Safety Report 10227584 (Version 3)
Quarter: 2015Q2

REPORT INFORMATION
  Report Type: Spontaneous
  Country: JP (occurrence: JP)
  Receive Date: 20140610
  Receipt Date: 20150615
  Transmission Date: 20150821
  Serious: Yes (Hospitalization)
  Sender: FDA-Public Use
  Company Number: JP-DSJP-DSJ-2014-107189

PATIENT
  Age: 80 Year
  Sex: Male
  Weight: 41 kg

DRUGS (7)
  1. LAC B [Concomitant]
     Active Substance: BIFIDOBACTERIUM SPP.
     Dosage: 1 G, TID
     Route: 048
     Dates: end: 20140421
  2. WARFARIN [Concomitant]
     Active Substance: WARFARIN
     Indication: CEREBRAL INFARCTION
     Dosage: 3.5 MG, QD
     Route: 048
  3. ZYLORIC [Concomitant]
     Active Substance: ALLOPURINOL
     Dosage: 100 MG, QD
     Route: 048
  4. ATELEC [Concomitant]
     Active Substance: CILNIDIPINE
     Dosage: 10 MG, BID
     Route: 048
  5. OLMETEC [Suspect]
     Active Substance: OLMESARTAN MEDOXOMIL
     Indication: HYPERTENSION
     Dosage: 20 MG, QD
     Route: 048
     Dates: start: 2013, end: 20140421
  6. EXCELASE [Concomitant]
     Active Substance: PANCRELIPASE
     Dosage: 1 DF, TID
     Route: 048
  7. ADOAIR [Concomitant]
     Active Substance: FLUTICASONE PROPIONATE\SALMETEROL XINAFOATE
     Indication: CHRONIC OBSTRUCTIVE PULMONARY DISEASE
     Dosage: 1 DF, BID
     Route: 055
     Dates: end: 20140421

REACTIONS (5)
  - Eyelid oedema [Recovering/Resolving]
  - Tongue oedema [Recovered/Resolved]
  - Lip oedema [Recovering/Resolving]
  - Rash [Recovering/Resolving]
  - Oedema peripheral [Recovering/Resolving]

NARRATIVE: CASE EVENT DATE: 2013
